FAERS Safety Report 8887514 (Version 1)
Quarter: 2012Q4

REPORT INFORMATION
  Report Type: Spontaneous
  Country: US (occurrence: None)
  Receive Date: 20121101
  Receipt Date: 20121101
  Transmission Date: 20130627
  Serious: Yes (Hospitalization)
  Sender: FDA-Public Use
  Company Number: None

PATIENT
  Age: 62 Year
  Sex: Female
  Weight: 92.7 kg

DRUGS (14)
  1. MELOXICAM [Suspect]
     Indication: PSORIATIC ARTHRITIS
     Dosage: 4mg and 5mg, alternating 0 48hrs, po
     Route: 048
  2. METHOTREXATE [Suspect]
     Indication: PSORIATIC ARTHRITIS
     Route: 030
  3. ATENOLOL [Concomitant]
  4. CLARITIN [Concomitant]
  5. PROZAC [Concomitant]
  6. HUMIRA [Concomitant]
  7. LIPITOR [Concomitant]
  8. FOLIC ACID [Concomitant]
  9. PRILOSEC [Concomitant]
  10. DIOVAN [Concomitant]
  11. GLIMEPIRIDE [Concomitant]
  12. FLONASE [Concomitant]
  13. VIT D [Concomitant]
  14. BONIVA [Concomitant]

REACTIONS (5)
  - Iron deficiency anaemia [None]
  - Rectal prolapse [None]
  - Asthenia [None]
  - Haematochezia [None]
  - Large intestine polyp [None]
